FAERS Safety Report 9701237 (Version 1)
Quarter: 2013Q4

REPORT INFORMATION
  Report Type: Spontaneous
  Country: US (occurrence: US)
  Receive Date: 20131121
  Receipt Date: 20131121
  Transmission Date: 20140711
  Serious: No
  Sender: FDA-Public Use
  Company Number: US-GILEAD-2008-0016184

PATIENT
  Sex: Female
  Weight: 69.85 kg

DRUGS (8)
  1. LETAIRIS [Suspect]
     Indication: PULMONARY ARTERIAL HYPERTENSION
     Route: 048
     Dates: start: 20080212
  2. PRINIVIL [Concomitant]
     Route: 048
  3. ALDACTONE [Concomitant]
     Route: 048
  4. LASIX [Concomitant]
     Route: 048
  5. K-DUR [Concomitant]
     Route: 048
  6. PROZAC [Concomitant]
     Route: 048
  7. ALBUTEROL [Concomitant]
     Route: 055
  8. TYLENOL [Concomitant]
     Route: 048

REACTIONS (2)
  - Flank pain [Unknown]
  - Chromaturia [Unknown]
